FAERS Safety Report 5857366-5 (Version None)
Quarter: 2008Q3

REPORT INFORMATION
  Report Type: 
  Country: None (occurrence: None)
  Receive Date: 20080825
  Receipt Date: 20080825
  Transmission Date: 20090109
  Serious: No
  Sender: FDA-Public Use
  Company Number: None

PATIENT
  Age: 66 Year
  Sex: Female

DRUGS (20)
  1. MACROBIN - NITROFURANTOIN [Suspect]
     Dates: start: 20050713, end: 20070210
  2. ACTIGAL [Concomitant]
  3. CITROFLOXACIN [Concomitant]
  4. VIT K [Concomitant]
  5. QUININE [Concomitant]
  6. ULTRAM [Concomitant]
  7. ZYRTEC [Concomitant]
  8. PREMARIN [Concomitant]
  9. ATIVAN [Concomitant]
  10. DILAUDID [Concomitant]
  11. TYLENOL (CAPLET) [Concomitant]
  12. FLONASE [Concomitant]
  13. LISINOPRIL [Concomitant]
  14. IMITREX [Concomitant]
  15. CYMBALTA [Concomitant]
  16. PREDNISONE TAB [Concomitant]
  17. IMURAN [Concomitant]
  18. AMBIEN [Concomitant]
  19. ALDACTONE [Concomitant]
  20. ROCEPHIN [Concomitant]

REACTIONS (17)
  - ASCITES [None]
  - AUTOIMMUNE HEPATITIS [None]
  - BILIARY DILATATION [None]
  - CHRONIC HEPATITIS [None]
  - CONFUSIONAL STATE [None]
  - ENTEROCOLITIS INFECTIOUS [None]
  - GALLBLADDER DISORDER [None]
  - HAEMATEMESIS [None]
  - HAEMATOCHEZIA [None]
  - HEPATIC CIRRHOSIS [None]
  - HEPATIC ENCEPHALOPATHY [None]
  - LIVER INJURY [None]
  - PORTAL HYPERTENSION [None]
  - SPLENOMEGALY [None]
  - SYNCOPE [None]
  - WEIGHT DECREASED [None]
  - WRONG TECHNIQUE IN DRUG USAGE PROCESS [None]
